FAERS Safety Report 4961787-2 (Version None)
Quarter: 2006Q1

REPORT INFORMATION
  Report Type: 
  Country: None (occurrence: None)
  Receive Date: 20060329
  Receipt Date: 20060314
  Transmission Date: 20060701
  Serious: Yes (Death)
  Sender: FDA-Public Use
  Company Number: 2006S1001516

PATIENT
  Age: 38 Year
  Sex: Female
  Weight: 67.1324 kg

DRUGS (7)
  1. CLOZAPINE [Suspect]
     Indication: SCHIZOPHRENIA, UNDIFFERENTIATED TYPE
     Dosage: 200 MG; QAM; ORAL;  400 MG; HS; ORAL
     Route: 048
     Dates: start: 20040322
  2. CLOZAPINE [Suspect]
     Indication: SCHIZOPHRENIA, UNDIFFERENTIATED TYPE
     Dosage: 200 MG; QAM; ORAL;  400 MG; HS; ORAL
     Route: 048
     Dates: start: 20040322
  3. RISPERIDONE [Concomitant]
  4. BENZTROPINE MESYLATE [Concomitant]
  5. CLONIDINE [Concomitant]
  6. ROSUVASTATIN [Concomitant]
  7. DIPHENHYDRAMINE [Concomitant]

REACTIONS (4)
  - OVARIAN CYST [None]
  - PERITONITIS [None]
  - SEPSIS [None]
  - SMALL INTESTINAL OBSTRUCTION [None]
